FAERS Safety Report 8870045 (Version 1)
Quarter: 2012Q4

REPORT INFORMATION
  Report Type: 
  Country: DE (occurrence: DE)
  Receive Date: 20121028
  Receipt Date: 20121028
  Transmission Date: 20130627
  Serious: Yes (Hospitalization)
  Sender: FDA-Public Use
  Company Number: DE-MYLANLABS-2012S1021757

PATIENT
  Age: 65 Year
  Sex: Female

DRUGS (13)
  1. TACROLIMUS [Suspect]
     Indication: IMMUNOSUPPRESSANT DRUG THERAPY
     Dosage: Serum concentration 4-8 microg/L for maintenance immunosuppression
     Route: 065
     Dates: start: 200907
  2. MYCOPHENOLATE MOFETIL [Suspect]
     Indication: IMMUNOSUPPRESSANT DRUG THERAPY
     Dosage: Maintenance immunosuppression
     Route: 065
     Dates: start: 200907
  3. PREDNISOLONE [Suspect]
     Indication: IMMUNOSUPPRESSANT DRUG THERAPY
     Dosage: Maintenance immunosuppression
     Route: 065
     Dates: start: 200907
  4. VORICONAZOLE [Interacting]
     Indication: ALTERNARIA INFECTION
     Route: 065
  5. CICLOPIROX [Suspect]
     Indication: ALTERNARIA INFECTION
     Dosage: Twice daily; occlusive dressing
     Route: 061
  6. METHYLPREDNISOLONE [Suspect]
     Indication: IMMUNOSUPPRESSANT DRUG THERAPY
     Dosage: Administered for induction
     Route: 065
     Dates: start: 200907, end: 200909
  7. METHYLPREDNISOLONE [Suspect]
     Indication: KIDNEY TRANSPLANT REJECTION
     Dosage: Administered for induction
     Route: 065
     Dates: start: 200907, end: 200909
  8. METHYLPREDNISOLONE [Suspect]
     Indication: IMMUNOSUPPRESSANT DRUG THERAPY
     Dosage: 250mg for 5 days
     Route: 040
     Dates: start: 200907, end: 200909
  9. METHYLPREDNISOLONE [Suspect]
     Indication: KIDNEY TRANSPLANT REJECTION
     Dosage: 250mg for 5 days
     Route: 040
     Dates: start: 200907, end: 200909
  10. ANTITHYMOCYTE IMMUNOGLOBULIN [Suspect]
     Indication: IMMUNOSUPPRESSANT DRUG THERAPY
     Dosage: Administered for induction
     Route: 065
     Dates: start: 200907
  11. CANCIDAS [Suspect]
     Indication: ALTERNARIA INFECTION
     Route: 042
  12. CANCIDAS [Suspect]
     Indication: ALTERNARIA INFECTION
     Dosage: 50 mg/day
     Route: 065
  13. AMPHOTERICIN B [Suspect]
     Indication: ALTERNARIA INFECTION
     Dosage: Four times daily; occlusive dressing
     Route: 061

REACTIONS (13)
  - Alternaria infection [Recovered/Resolved]
  - Blood creatinine increased [Unknown]
  - Drug interaction [Recovered/Resolved]
  - Leukopenia [Recovered/Resolved]
  - Headache [Recovered/Resolved]
  - Abdominal pain [Recovered/Resolved]
  - Arthralgia [Recovered/Resolved]
  - Nausea [Recovered/Resolved]
  - Pruritus [Recovered/Resolved]
  - Paraesthesia [Recovered/Resolved]
  - Hot flush [Recovered/Resolved]
  - Freezing phenomenon [Recovered/Resolved]
  - Erythema [Recovered/Resolved]
